FAERS Safety Report 6197752-X (Version None)
Quarter: 2009Q2

REPORT INFORMATION
  Report Type: 
  Country: None (occurrence: None)
  Receive Date: 20090521
  Receipt Date: 20090512
  Transmission Date: 20091009
  Serious: Yes (Other)
  Sender: FDA-Public Use
  Company Number: FR-ELI_LILLY_AND_COMPANY-FR200903002632

PATIENT
  Age: 57 Year
  Sex: Female
  Weight: 75 kg

DRUGS (5)
  1. ZYPREXA [Suspect]
     Indication: BIPOLAR DISORDER
     Dosage: 7.5 MG, DAILY (1/D)
     Route: 048
     Dates: start: 20050701
  2. ZYPREXA [Suspect]
     Dosage: 5 MG, DAILY (1/D)
     Route: 048
  3. NORSET [Concomitant]
     Route: 048
     Dates: start: 20060201, end: 20060301
  4. XANAX [Concomitant]
     Indication: ANXIETY
     Dosage: 0.5 MG, DAILY (1/D)
     Route: 048
  5. TERCIAN [Concomitant]
     Indication: ANXIETY
     Route: 048
     Dates: start: 20060217, end: 20060201

REACTIONS (1)
  - TRANSIENT ISCHAEMIC ATTACK [None]
